FAERS Safety Report 10927653 (Version 1)
Quarter: 2015Q1

REPORT INFORMATION
  Report Type: Spontaneous
  Country: TR (occurrence: TR)
  Receive Date: 20150319
  Receipt Date: 20150319
  Transmission Date: 20150721
  Serious: Yes (Other)
  Sender: FDA-Public Use
  Company Number: TR-UCBSA-2015007826

PATIENT
  Sex: Male

DRUGS (1)
  1. BENVIDA [Suspect]
     Active Substance: LACOSAMIDE
     Indication: EPILEPSY
     Dosage: UNK
     Route: 048

REACTIONS (1)
  - Myoclonic epilepsy [Recovered/Resolved]
